FAERS Safety Report 4969348-6 (Version None)
Quarter: 2006Q2

REPORT INFORMATION
  Report Type: 
  Country: None (occurrence: None)
  Receive Date: 20060405
  Receipt Date: 20060328
  Transmission Date: 20061013
  Serious: Yes (Hospitalization, Other)
  Sender: FDA-Public Use
  Company Number: 2006042894

PATIENT
  Age: 70 Year
  Sex: Male
  Weight: 115.6672 kg

DRUGS (5)
  1. LIPITOR [Suspect]
     Indication: BLOOD CHOLESTEROL INCREASED
     Dosage: 10 MG (10 MG, 1 IN 1 D)
     Dates: start: 20050501
  2. PLAVIX [Concomitant]
  3. VASOTEC [Concomitant]
  4. VERAPAMIL [Concomitant]
  5. DYAZIDE [Concomitant]

REACTIONS (6)
  - BLOOD POTASSIUM DECREASED [None]
  - FATIGUE [None]
  - INSOMNIA [None]
  - MUSCULAR WEAKNESS [None]
  - SHOULDER PAIN [None]
  - TRANSIENT ISCHAEMIC ATTACK [None]
